FAERS Safety Report 8807515 (Version 1)
Quarter: 2012Q4

REPORT INFORMATION
  Report Type: 
  Country: US (occurrence: US)
  Receive Date: 20120925
  Receipt Date: 20120925
  Transmission Date: 20130627
  Serious: No
  Sender: FDA-Public Use
  Company Number: US-ABBOTT-12P-163-0964387-00

PATIENT
  Sex: Female

DRUGS (1)
  1. VICOPROFEN [Suspect]
     Indication: PRODUCT USED FOR UNKNOWN INDICATION
     Dosage: 7.5/200 mg

REACTIONS (1)
  - Mental impairment [Not Recovered/Not Resolved]
